FAERS Safety Report 6345531-2 (Version None)
Quarter: 2009Q3

REPORT INFORMATION
  Report Type: 
  Country: None (occurrence: None)
  Receive Date: 20090909
  Receipt Date: 20090827
  Transmission Date: 20100115
  Serious: Yes (Disabling)
  Sender: FDA-Public Use
  Company Number: GB-PFIZER INC-2009260407

PATIENT
  Age: 38 Year

DRUGS (2)
  1. CHAMPIX [Suspect]
     Indication: SMOKING CESSATION THERAPY
     Dosage: 1.5 MG, UNK
     Route: 048
     Dates: start: 20080807
  2. PRIADEL [Concomitant]
     Indication: PSYCHOTIC DISORDER
     Dosage: 200 MG, UNK
     Route: 048
     Dates: start: 20080721

REACTIONS (3)
  - INTENTIONAL OVERDOSE [None]
  - PSYCHOTIC DISORDER [None]
  - TACHYPHRENIA [None]
